FAERS Safety Report 19973234 (Version 1)
Quarter: 2021Q4

REPORT INFORMATION
  Report Type: Report from Study
  Country: US (occurrence: US)
  Receive Date: 20211019
  Receipt Date: 20211019
  Transmission Date: 20220303
  Serious: Yes (Death, Other)
  Sender: FDA-Public Use
  Company Number: US-ACADIA PHARMACEUTICALS INC.-ACA-2021-PIM-003422

PATIENT
  Age: 90 Year
  Sex: Male

DRUGS (13)
  1. NUPLAZID [Suspect]
     Active Substance: PIMAVANSERIN TARTRATE
     Indication: Parkinson^s disease psychosis
     Dosage: 34 MILLIGRAM, QD
     Route: 048
     Dates: start: 20200513, end: 20210910
  2. CARBIDOPA\LEVODOPA [Concomitant]
     Active Substance: CARBIDOPA\LEVODOPA
     Dosage: 25-100 MG
  3. TRAMADOL [Concomitant]
     Active Substance: TRAMADOL
     Dosage: 50 MILLIGRAM
  4. CEPHALEXIN [Concomitant]
     Active Substance: CEPHALEXIN
     Dosage: 500 MILLIGRAM
  5. BETAMETHASONE CLOTRIMAZOLE [Concomitant]
     Active Substance: BETAMETHASONE DIPROPIONATE\CLOTRIMAZOLE
  6. DONEPEZIL [Concomitant]
     Active Substance: DONEPEZIL
     Dosage: 10 MILLIGRAM
  7. FLUDROCORTISONE [Concomitant]
     Active Substance: FLUDROCORTISONE
     Dosage: 0.1 MG
  8. GENTAMICIN [Concomitant]
     Active Substance: GENTAMICIN
  9. MIDODRINE [Concomitant]
     Active Substance: MIDODRINE
     Dosage: 5 MILLIGRAM
  10. NYSTATIN [Concomitant]
     Active Substance: NYSTATIN
  11. POTASSIUM CHLORIDE [Concomitant]
     Active Substance: POTASSIUM CHLORIDE
     Dosage: 10 MEQ
  12. QUETIAPINE [Concomitant]
     Active Substance: QUETIAPINE
     Dosage: 50 MILLIGRAM
  13. ROPINIROLE [Concomitant]
     Active Substance: ROPINIROLE
     Dosage: 0.5 MG

REACTIONS (2)
  - Death [Recovered/Resolved]
  - Bedridden [Unknown]

NARRATIVE: CASE EVENT DATE: 20210910
